FAERS Safety Report 6044535-7 (Version None)
Quarter: 2009Q1

REPORT INFORMATION
  Report Type: 
  Country: None (occurrence: None)
  Receive Date: 20090120
  Receipt Date: 20090113
  Transmission Date: 20090719
  Serious: Yes (Hospitalization, Congenital Anomaly, Other)
  Sender: FDA-Public Use
  Company Number: FRWYE436212APR07

PATIENT
  Sex: Female
  Weight: 2.4 kg

DRUGS (11)
  1. EFFEXOR [Suspect]
     Indication: DEPRESSION
     Dosage: 37,5 MG TOTAL DAILY
     Route: 064
     Dates: end: 20060831
  2. NOCTAMID [Suspect]
     Indication: DEPRESSION
     Route: 064
     Dates: end: 20060831
  3. EQUANIL [Suspect]
     Indication: DEPRESSION
     Dosage: 200 MG TOTAL DAILY
     Route: 064
     Dates: end: 20060831
  4. CYTOTEC [Concomitant]
     Dosage: UNKNOWN
     Route: 064
     Dates: start: 20060830, end: 20060801
  5. DAFALGAN [Concomitant]
     Dosage: UNKNOWN
     Route: 064
  6. VALERIAN EXTRACT [Concomitant]
     Dosage: UNKNOWN
     Route: 064
  7. CRATAEGUS EXTRACT [Concomitant]
     Dosage: UNKNOWN
     Route: 064
  8. PASSIFLORA EXTRACT [Concomitant]
     Dosage: UNKNOWN
     Route: 064
  9. TRANXENE [Suspect]
     Indication: DEPRESSION
     Dosage: UNKNOWN
     Route: 064
     Dates: end: 20060501
  10. TRANXENE [Suspect]
     Dosage: 30 MG TOTAL DAILY
     Route: 064
     Dates: start: 20060601, end: 20060831
  11. BISOPROLOL FUMARATE [Concomitant]
     Indication: HYPERTENSION
     Dosage: UNKNOWN
     Route: 064

REACTIONS (12)
  - COW'S MILK INTOLERANCE [None]
  - CYANOSIS NEONATAL [None]
  - DRUG EXPOSURE DURING PREGNANCY [None]
  - DYSPHAGIA [None]
  - ERYTHROSIS [None]
  - FEEDING DISORDER NEONATAL [None]
  - FOETAL GROWTH RETARDATION [None]
  - HAEMANGIOMA OF SKIN [None]
  - JAUNDICE NEONATAL [None]
  - POLYCYTHAEMIA [None]
  - POOR SUCKING REFLEX [None]
  - PREMATURE BABY [None]
